FAERS Safety Report 5636283-X (Version None)
Quarter: 2008Q1

REPORT INFORMATION
  Report Type: 
  Country: None (occurrence: None)
  Receive Date: 20080220
  Receipt Date: 20080220
  Transmission Date: 20080703
  Serious: Yes (Other)
  Sender: FDA-Public Use
  Company Number: None

PATIENT
  Age: 1 Year
  Sex: Male
  Weight: 13.1543 kg

DRUGS (1)
  1. ROCEPHIN [Suspect]
     Indication: OTITIS MEDIA
     Dosage: 700MG IM
     Route: 030

REACTIONS (1)
  - INJECTION SITE RASH [None]
